FAERS Safety Report 9618093 (Version 2)
Quarter: 2013Q4

REPORT INFORMATION
  Report Type: Report from Study
  Country: PH (occurrence: PH)
  Receive Date: 20131013
  Receipt Date: 20131023
  Transmission Date: 20140711
  Serious: Yes (Death, Hospitalization)
  Sender: FDA-Public Use
  Company Number: PH-B.I. PHARMACEUTICALS,INC./RIDGEFIELD-2013-BI-30857RP

PATIENT
  Age: 59 Year
  Sex: Female
  Weight: 35 kg

DRUGS (7)
  1. AFATINIB [Suspect]
     Indication: NON-SMALL CELL LUNG CANCER
     Route: 048
     Dates: start: 20130928, end: 20131010
  2. OXYCONTIN 20MG 98 [Concomitant]
     Indication: PAIN
     Dosage: 20 MG
     Route: 048
     Dates: start: 20130909
  3. OXYNORM 10MG AS NEEDED [Concomitant]
     Indication: PAIN
     Dosage: 10 MG
     Route: 048
     Dates: start: 20130625
  4. LYRICA 75MG 98 [Concomitant]
     Indication: PAIN
     Dosage: 75 MG
     Route: 048
     Dates: start: 20130625
  5. DEXAMETHASONE [Concomitant]
     Indication: INCREASED APPETITE
     Dosage: 5 MG
     Route: 042
     Dates: start: 20131011, end: 20131018
  6. NOXAPAM [Concomitant]
     Indication: PROPHYLAXIS
     Dosage: 0.4 MG
     Route: 058
     Dates: start: 20131017, end: 20131018
  7. POTASSIUM CHLORIDE [Concomitant]
     Indication: HYPOKALAEMIA
     Dosage: 30 ML
     Route: 048
     Dates: start: 20131017, end: 20131018

REACTIONS (6)
  - Pneumonia [Fatal]
  - Asthenia [Not Recovered/Not Resolved]
  - Diarrhoea [Unknown]
  - Lip dry [Unknown]
  - Dermatitis acneiform [Unknown]
  - Decreased appetite [Unknown]
